FAERS Safety Report 5045551-4 (Version None)
Quarter: 2006Q2

REPORT INFORMATION
  Report Type: 
  Country: None (occurrence: None)
  Receive Date: 20060601
  Receipt Date: 20060206
  Transmission Date: 20061013
  Serious: No
  Sender: FDA-Public Use
  Company Number: 2006-BP-01363BP

PATIENT
  Age: 62 Year
  Sex: Male

DRUGS (1)
  1. SPIRIVA [Suspect]
     Dosage: 18 MCG (18 MCG), IH
     Route: 055
     Dates: start: 20051001, end: 20051001

REACTIONS (1)
  - URINARY HESITATION [None]
